FAERS Safety Report 9368823 (Version 2)
Quarter: 2013Q3

REPORT INFORMATION
  Report Type: Spontaneous
  Country: BR (occurrence: BR)
  Receive Date: 20130626
  Receipt Date: 20130814
  Transmission Date: 20140515
  Serious: No
  Sender: FDA-Public Use
  Company Number: BR-AMGEN-BRASP2013044649

PATIENT
  Age: 60 Year
  Sex: Female
  Weight: 118 kg

DRUGS (7)
  1. ENBREL [Suspect]
     Indication: RHEUMATOID ARTHRITIS
     Dosage: 50 MG, ONCE A WEEK
     Route: 058
     Dates: start: 201212
  2. METHOTREXATE [Concomitant]
     Dosage: 15 MG (6 TABLETS OF 2.5MG), ONCE A WEEK
     Route: 048
  3. LOSARTAN [Concomitant]
     Dosage: 50 MG (ONE TABLET), ONCE A DAY
     Route: 048
  4. SIMVASTATIN [Concomitant]
     Dosage: 20 MG (ONE TABLET), ONCE A DAY
     Route: 048
  5. LEVOTHYROXINE [Concomitant]
     Dosage: 50 MG (ONE TABLET), ONCE A DAY
     Route: 048
  6. METHIONINE [Concomitant]
     Dosage: UNK
     Route: 048
  7. SILYMARIN [Concomitant]
     Dosage: UNK
     Route: 048

REACTIONS (2)
  - Expired drug administered [Unknown]
  - Injection site pain [Unknown]
